FAERS Safety Report 13673825 (Version 1)
Quarter: 2017Q2

REPORT INFORMATION
  Report Type: Spontaneous
  Country: FR (occurrence: FR)
  Receive Date: 20170621
  Receipt Date: 20170621
  Transmission Date: 20170830
  Serious: Yes (Other)
  Sender: FDA-Public Use
  Company Number: FR-TEVA-779277ROM

PATIENT
  Age: 75 Year
  Sex: Female

DRUGS (1)
  1. RIVASTIGMINE. [Suspect]
     Active Substance: RIVASTIGMINE
     Indication: MIXED DEMENTIA
     Dosage: 4.5 MG
     Route: 065

REACTIONS (1)
  - Accessory cardiac pathway [Recovered/Resolved]
